FAERS Safety Report 13402237 (Version 1)
Quarter: 2017Q2

REPORT INFORMATION
  Report Type: Spontaneous
  Country: US (occurrence: US)
  Receive Date: 20170404
  Receipt Date: 20170404
  Transmission Date: 20170830
  Serious: No
  Sender: FDA-Public Use
  Company Number: US-SHIRE-US201707245

PATIENT
  Sex: Female
  Weight: 86.17 kg

DRUGS (4)
  1. METHYLPHENIDATE HYDROCHLORIDE. [Suspect]
     Active Substance: METHYLPHENIDATE HYDROCHLORIDE
     Indication: ATTENTION DEFICIT/HYPERACTIVITY DISORDER
     Dosage: 60 MG (TWO 30 MG CAPSULES), 1X/DAY:QD
     Route: 048
     Dates: end: 2016
  2. RISPERDAL [Concomitant]
     Active Substance: RISPERIDONE
     Indication: ANGER
     Dosage: 0.5 MG, 2X/DAY:BID
     Route: 048
     Dates: start: 2016
  3. ADDERALL XR [Suspect]
     Active Substance: AMPHETAMINE ASPARTATE\AMPHETAMINE SULFATE\DEXTROAMPHETAMINE SACCHARATE\DEXTROAMPHETAMINE SULFATE
     Indication: ATTENTION DEFICIT/HYPERACTIVITY DISORDER
     Dosage: 60 MG, 1X/DAY:QD
     Route: 048
  4. CLONIDINE. [Concomitant]
     Active Substance: CLONIDINE
     Indication: ATTENTION DEFICIT/HYPERACTIVITY DISORDER
     Dosage: UNK, 2X/DAY:BID
     Route: 048
     Dates: start: 2016

REACTIONS (5)
  - Drug ineffective [Recovered/Resolved]
  - Body height increased [Unknown]
  - Weight increased [Unknown]
  - Product quality issue [Unknown]
  - Adverse event [Recovered/Resolved]
